FAERS Safety Report 6882119-9 (Version None)
Quarter: 2010Q3

REPORT INFORMATION
  Report Type: 
  Country: None (occurrence: None)
  Receive Date: 20100727
  Receipt Date: 20100727
  Transmission Date: 20110219
  Serious: Yes (Other)
  Sender: FDA-Public Use
  Company Number: None

PATIENT
  Age: 65 Year
  Sex: Female
  Weight: 65.7716 kg

DRUGS (1)
  1. METRONIDAZOLE [Suspect]
     Indication: ANTIBIOTIC THERAPY
     Dosage: 2 PER DAY
     Dates: start: 20100202, end: 20100212

REACTIONS (6)
  - BURNING SENSATION [None]
  - DYSGEUSIA [None]
  - FOOT FRACTURE [None]
  - HEADACHE [None]
  - LOSS OF CONSCIOUSNESS [None]
  - RASH ERYTHEMATOUS [None]
